FAERS Safety Report 6988332-4 (Version None)
Quarter: 2010Q3

REPORT INFORMATION
  Report Type: 
  Country: None (occurrence: None)
  Receive Date: 20100916
  Receipt Date: 20100913
  Transmission Date: 20110219
  Serious: Yes (Other)
  Sender: FDA-Public Use
  Company Number: CA-BAYER-201016146BCC

PATIENT
  Age: 71 Year
  Sex: Male

DRUGS (7)
  1. ASPIRIN [Suspect]
     Indication: ANTICOAGULANT THERAPY
     Dosage: TOTAL DAILY DOSE: 81 MG  UNIT DOSE: 81 MG
     Route: 048
  2. PENNSAID [Suspect]
     Indication: ARTHRALGIA
     Dosage: USED FIVE TO SIX DROPS THREE TIMES A DAY
     Route: 061
     Dates: start: 20100222
  3. PENNSAID [Suspect]
     Dosage: USED FIVE TO SIX DROPS TWOTIMES A DAY
     Route: 061
     Dates: start: 20100301, end: 20100302
  4. COUMADIN [Suspect]
     Indication: ANTICOAGULANT THERAPY
     Dosage: TOOK ON WEDNESDAY AND SUNDAY
     Route: 048
  5. COUMADIN [Suspect]
     Route: 048
  6. CRESTOR [Concomitant]
     Route: 048
  7. RAMIPRIL [Concomitant]
     Route: 048

REACTIONS (2)
  - EPISTAXIS [None]
  - INTERNATIONAL NORMALISED RATIO INCREASED [None]
